FAERS Safety Report 12796507 (Version 2)
Quarter: 2016Q4

REPORT INFORMATION
  Report Type: Report from Study
  Country: DE (occurrence: DE)
  Receive Date: 20160929
  Receipt Date: 20161101
  Transmission Date: 20170207
  Serious: Yes (Death, Other)
  Sender: FDA-Public Use
  Company Number: DE-INCYTE CORPORATION-2014IN001010

PATIENT
  Sex: Male
  Weight: 88 kg

DRUGS (11)
  1. LITALIR [Concomitant]
     Active Substance: HYDROXYUREA
     Indication: MYELOPROLIFERATIVE NEOPLASM
     Dosage: 3 OT, UNK
     Route: 065
     Dates: start: 20130130, end: 20130428
  2. INCB018424 [Suspect]
     Active Substance: RUXOLITINIB
     Dosage: 10 MG, QD
     Route: 048
     Dates: start: 20140122, end: 20140406
  3. LITALIR [Concomitant]
     Active Substance: HYDROXYUREA
     Indication: ESSENTIAL THROMBOCYTHAEMIA
     Dosage: UNK
     Dates: start: 20101011, end: 20140218
  4. LITALIR [Concomitant]
     Active Substance: HYDROXYUREA
     Indication: MYELOPROLIFERATIVE NEOPLASM
     Dosage: 2 OT, UNK
     Route: 065
     Dates: start: 20101011, end: 20130130
  5. LITALIR [Concomitant]
     Active Substance: HYDROXYUREA
     Dosage: 1 OT, UNK
     Route: 065
     Dates: start: 20131002, end: 20131223
  6. ARANESP [Concomitant]
     Active Substance: DARBEPOETIN ALFA
     Indication: MYELOFIBROSIS
     Dosage: 300 UG, QW (300 UG, APPROXIMATELY ONCE PER WEEK)
     Route: 065
     Dates: start: 20120719
  7. ARANESP [Concomitant]
     Active Substance: DARBEPOETIN ALFA
     Indication: MYELOPROLIFERATIVE NEOPLASM
  8. LITALIR [Concomitant]
     Active Substance: HYDROXYUREA
     Dosage: 0.5 OT, UNK
     Route: 065
     Dates: start: 20131223, end: 20140218
  9. INCB018424 [Suspect]
     Active Substance: RUXOLITINIB
     Indication: MYELOFIBROSIS
     Dosage: 30 MG, QD
     Route: 048
     Dates: start: 20120424
  10. LITALIR [Concomitant]
     Active Substance: HYDROXYUREA
     Dosage: 2 OT, UNK
     Route: 065
     Dates: start: 20130429, end: 20131001
  11. INCB018424 [Suspect]
     Active Substance: RUXOLITINIB
     Dosage: 20 MG, QD
     Route: 048
     Dates: start: 20131223, end: 20140121

REACTIONS (3)
  - Acute myeloid leukaemia [Fatal]
  - Blast cell crisis [Fatal]
  - Pneumonia [Fatal]

NARRATIVE: CASE EVENT DATE: 20140214
